FAERS Safety Report 7138912-0 (Version None)
Quarter: 2010Q4

REPORT INFORMATION
  Report Type: 
  Country: None (occurrence: None)
  Receive Date: 20101206
  Receipt Date: 20101123
  Transmission Date: 20110411
  Serious: Yes (Death, Hospitalization)
  Sender: FDA-Public Use
  Company Number: A0661465A

PATIENT
  Age: 79 Year
  Sex: Male

DRUGS (3)
  1. AVANDIA [Suspect]
     Route: 048
     Dates: start: 20070703, end: 20071003
  2. GLUCOVANCE [Concomitant]
  3. LISINOPRIL [Concomitant]

REACTIONS (4)
  - ANXIETY [None]
  - DEATH [None]
  - MYOCARDIAL INFARCTION [None]
  - PAIN [None]
